FAERS Safety Report 19939819 (Version 1)
Quarter: 2021Q4

REPORT INFORMATION
  Report Type: Report from Study
  Country: None (occurrence: US)
  Receive Date: 20211012
  Receipt Date: 20211012
  Transmission Date: 20220303
  Serious: Yes (Other)
  Sender: FDA-Public Use
  Company Number: US-ABBVIE-21K-163-3983461-00

PATIENT
  Age: 43 Year
  Sex: Female

DRUGS (4)
  1. HUMIRA [Suspect]
     Active Substance: ADALIMUMAB
     Indication: Crohn^s disease
     Dosage: DAY 1?LOADING DOSE
     Route: 058
     Dates: start: 20210702, end: 20210702
  2. HUMIRA [Suspect]
     Active Substance: ADALIMUMAB
     Dosage: DAY 2?LOADING DOSE
     Route: 058
     Dates: start: 20210703, end: 20210703
  3. HUMIRA [Suspect]
     Active Substance: ADALIMUMAB
     Dosage: DAY 15?LOADING DOSE
     Route: 058
     Dates: start: 20210716, end: 20210716
  4. HUMIRA [Suspect]
     Active Substance: ADALIMUMAB
     Indication: Crohn^s disease
     Route: 058
     Dates: start: 20210730

REACTIONS (17)
  - Carpal tunnel syndrome [Unknown]
  - Fatigue [Recovering/Resolving]
  - Gastrointestinal sounds abnormal [Recovering/Resolving]
  - Frequent bowel movements [Not Recovered/Not Resolved]
  - Malaise [Unknown]
  - Asthenia [Recovering/Resolving]
  - Loss of personal independence in daily activities [Recovering/Resolving]
  - Flatulence [Not Recovered/Not Resolved]
  - Anxiety [Not Recovered/Not Resolved]
  - Insomnia [Recovering/Resolving]
  - Haematochezia [Unknown]
  - Abdominal distension [Not Recovered/Not Resolved]
  - Diarrhoea [Recovering/Resolving]
  - Abdominal pain [Unknown]
  - Urinary tract infection [Unknown]
  - Arthralgia [Recovering/Resolving]
  - Vomiting [Not Recovered/Not Resolved]

NARRATIVE: CASE EVENT DATE: 20210101
